FAERS Safety Report 24128792 (Version 3)
Quarter: 2025Q4

REPORT INFORMATION
  Report Type: Spontaneous
  Country: EU (occurrence: EU)
  Receive Date: 20240723
  Receipt Date: 20251010
  Transmission Date: 20260118
  Serious: Yes (Other)
  Sender: SANDOZ
  Company Number: EU-BAYER-2024A100325

PATIENT
  Sex: Male

DRUGS (2)
  1. CIPROFLOXACIN [Suspect]
     Active Substance: CIPROFLOXACIN
     Indication: Product used for unknown indication
     Dosage: UNK
     Route: 065
  2. LEVOFLOXACIN [Concomitant]
     Active Substance: LEVOFLOXACIN
     Indication: Product used for unknown indication
     Dosage: UNK
     Route: 065

REACTIONS (73)
  - Exophthalmos [Recovered/Resolved]
  - Brain injury [Unknown]
  - Angina pectoris [Recovered/Resolved]
  - Suicidal ideation [Unknown]
  - Thrombosis [Not Recovered/Not Resolved]
  - Muscle rupture [Not Recovered/Not Resolved]
  - Neuropathy peripheral [Not Recovered/Not Resolved]
  - Suicidal ideation [Not Recovered/Not Resolved]
  - Pneumothorax [Not Recovered/Not Resolved]
  - Venous injury [Unknown]
  - Dysstasia [Unknown]
  - Hyperacusis [Unknown]
  - Nervous system disorder [Unknown]
  - Gastrointestinal disorder [Unknown]
  - Skin exfoliation [Unknown]
  - Neck pain [Unknown]
  - Genital burning sensation [Unknown]
  - Disturbance in attention [Unknown]
  - Weight decreased [Unknown]
  - Spinal pain [Unknown]
  - Breast pain [Unknown]
  - Fear [Recovered/Resolved]
  - Illness [Unknown]
  - Palpitations [Unknown]
  - Back pain [Unknown]
  - Fatigue [Unknown]
  - Myalgia [Unknown]
  - Pruritus [Recovered/Resolved]
  - Dyspepsia [Unknown]
  - Sleep disorder [Recovered/Resolved]
  - Burning sensation [Unknown]
  - Arthralgia [Unknown]
  - Hypoaesthesia [Not Recovered/Not Resolved]
  - Tinnitus [Unknown]
  - Headache [Unknown]
  - Eye pain [Unknown]
  - Palpitations [Not Recovered/Not Resolved]
  - Illness [Unknown]
  - Tendon rupture [Not Recovered/Not Resolved]
  - Chondropathy [Unknown]
  - Vascular rupture [Unknown]
  - Superficial vein prominence [Unknown]
  - Umbilical hernia [Not Recovered/Not Resolved]
  - Intervertebral disc protrusion [Not Recovered/Not Resolved]
  - Urinary incontinence [Not Recovered/Not Resolved]
  - Diarrhoea [Not Recovered/Not Resolved]
  - Tremor [Not Recovered/Not Resolved]
  - Muscle twitching [Not Recovered/Not Resolved]
  - Visual impairment [Not Recovered/Not Resolved]
  - Tinnitus [Not Recovered/Not Resolved]
  - Auditory disorder [Not Recovered/Not Resolved]
  - Tooth disorder [Not Recovered/Not Resolved]
  - Onycholysis [Not Recovered/Not Resolved]
  - Rash [Not Recovered/Not Resolved]
  - Photophobia [Not Recovered/Not Resolved]
  - Hepatic lesion [Not Recovered/Not Resolved]
  - Vein disorder [Not Recovered/Not Resolved]
  - Emotional distress [Unknown]
  - Mobility decreased [Not Recovered/Not Resolved]
  - Gait disturbance [Not Recovered/Not Resolved]
  - Akathisia [Not Recovered/Not Resolved]
  - Cognitive disorder [Not Recovered/Not Resolved]
  - Fibromyalgia [Unknown]
  - Mental disorder [Not Recovered/Not Resolved]
  - Neuralgia [Not Recovered/Not Resolved]
  - Musculoskeletal pain [Not Recovered/Not Resolved]
  - Alopecia [Not Recovered/Not Resolved]
  - Pain [Not Recovered/Not Resolved]
  - Insomnia [Not Recovered/Not Resolved]
  - Spinal pain [Not Recovered/Not Resolved]
  - General physical health deterioration [Not Recovered/Not Resolved]
  - Formication [Unknown]
  - Lacrimation increased [Not Recovered/Not Resolved]
